FAERS Safety Report 17547349 (Version 1)
Quarter: 2020Q1

REPORT INFORMATION
  Report Type: Spontaneous
  Country: FR (occurrence: FR)
  Receive Date: 20200316
  Receipt Date: 20200316
  Transmission Date: 20200409
  Serious: Yes (Death)
  Sender: FDA-Public Use
  Company Number: FR-PFIZER INC-2020111531

PATIENT
  Age: 16 Year
  Sex: Male

DRUGS (5)
  1. LORMETAZEPAM [Suspect]
     Active Substance: LORMETAZEPAM
     Dosage: 1 DF, UNK
     Dates: start: 20200101
  2. MILNACIPRAN [Suspect]
     Active Substance: MILNACIPRAN
     Dosage: 1 DF, UNK
     Dates: start: 20200101
  3. CITALOPRAM [Suspect]
     Active Substance: CITALOPRAM HYDROBROMIDE
     Dosage: 1 DF, UNK
     Dates: start: 20200101
  4. ALPRAZOLAM. [Suspect]
     Active Substance: ALPRAZOLAM
     Dosage: 1 DF, UNK
     Dates: start: 20200101
  5. METHADONE [Suspect]
     Active Substance: METHADONE HYDROCHLORIDE
     Dosage: 1 DF, UNK
     Dates: start: 20200101

REACTIONS (3)
  - Drug abuse [Fatal]
  - Product use issue [Unknown]
  - Off label use [Unknown]

NARRATIVE: CASE EVENT DATE: 20200101
